FAERS Safety Report 25758316 (Version 1)
Quarter: 2025Q3

REPORT INFORMATION
  Report Type: Spontaneous
  Country: CN (occurrence: CN)
  Receive Date: 20250904
  Receipt Date: 20250904
  Transmission Date: 20251021
  Serious: Yes (Hospitalization)
  Sender: BEIGENE
  Company Number: CN-BEIGENE-BGN-2025-014512

PATIENT
  Age: 56 Year
  Weight: 52 kg

DRUGS (2)
  1. BRUKINSA [Suspect]
     Active Substance: ZANUBRUTINIB
     Indication: Mantle cell lymphoma recurrent
     Dosage: 160 MILLIGRAM, BID
  2. BORTEZOMIB [Concomitant]
     Active Substance: BORTEZOMIB
     Indication: Mantle cell lymphoma recurrent

REACTIONS (1)
  - Myelosuppression [Recovering/Resolving]
